FAERS Safety Report 8227610-8 (Version None)
Quarter: 2012Q1

REPORT INFORMATION
  Report Type: 
  Country: None (occurrence: None)
  Receive Date: 20120322
  Receipt Date: 20120312
  Transmission Date: 20120608
  Serious: Yes (Hospitalization)
  Sender: FDA-Public Use
  Company Number: US-ELI_LILLY_AND_COMPANY-US201203003923

PATIENT
  Age: 39 Year
  Sex: Male

DRUGS (8)
  1. RESTORIL [Concomitant]
     Indication: SLEEP DISORDER
  2. AMBIEN [Concomitant]
     Dosage: UNK, PRN
  3. ATIVAN [Concomitant]
     Dosage: UNK, PRN
  4. ZYPREXA [Suspect]
     Indication: MENTAL RETARDATION
     Dosage: 20 MG, BID
     Dates: start: 20110901
  5. TOPAMAX [Concomitant]
     Dosage: 25 MG, BID
  6. ZYPREXA [Suspect]
     Dosage: 20 MG, BID
  7. LATUDA [Concomitant]
  8. TRILEPTAL [Concomitant]
     Dosage: 150 MG, BID

REACTIONS (4)
  - THINKING ABNORMAL [None]
  - PSYCHIATRIC SYMPTOM [None]
  - OVERDOSE [None]
  - OFF LABEL USE [None]
